FAERS Safety Report 16180268 (Version 1)
Quarter: 2019Q2

REPORT INFORMATION
  Report Type: Spontaneous
  Country: US (occurrence: US)
  Receive Date: 20190307
  Receipt Date: 20190307
  Transmission Date: 20190711
  Serious: Yes (Hospitalization)
  Sender: FDA-Public Use
  Company Number: None

PATIENT
  Age: 67 Year
  Sex: Male

DRUGS (1)
  1. DABIGATRAN [Suspect]
     Active Substance: DABIGATRAN
     Indication: DEEP VEIN THROMBOSIS
     Route: 048
     Dates: start: 20180116, end: 20181128

REACTIONS (7)
  - Haematochezia [None]
  - Chest pain [None]
  - Presyncope [None]
  - Haemorrhage [None]
  - Gastrointestinal haemorrhage [None]
  - Diarrhoea [None]
  - Gastroenteritis [None]

NARRATIVE: CASE EVENT DATE: 20180815
